FAERS Safety Report 11642239 (Version 1)
Quarter: 2015Q4

REPORT INFORMATION
  Report Type: Spontaneous
  Country: US (occurrence: US)
  Receive Date: 20151019
  Receipt Date: 20151019
  Transmission Date: 20160304
  Serious: No
  Sender: FDA-Public Use
  Company Number: US-PFIZER INC-2015318375

PATIENT
  Age: 83 Year
  Sex: Female

DRUGS (1)
  1. LIPITOR [Suspect]
     Active Substance: ATORVASTATIN CALCIUM
     Dosage: 20 MG, UNK

REACTIONS (8)
  - Dizziness [Unknown]
  - Fatigue [Unknown]
  - Mobility decreased [Unknown]
  - Limb discomfort [Unknown]
  - Asthenia [Unknown]
  - Restlessness [Unknown]
  - Depression [Unknown]
  - Myalgia [Unknown]
